FAERS Safety Report 10332794 (Version 3)
Quarter: 2018Q4

REPORT INFORMATION
  Report Type: Spontaneous
  Country: TR (occurrence: TR)
  Receive Date: 20140722
  Receipt Date: 20181214
  Transmission Date: 20190204
  Serious: Yes (Hospitalization)
  Sender: FDA-Public Use
  Company Number: TR-TEVA-490438GER

PATIENT
  Age: 39 Year
  Sex: Female

DRUGS (3)
  1. AMOXICILLIN. [Suspect]
     Active Substance: AMOXICILLIN
     Dosage: 4 GRAM DAILY; 1 G EVERY 6 HOURS
     Route: 042
  2. BETAMETHASONE. [Suspect]
     Active Substance: BETAMETHASONE
     Dosage: 12 MILLIGRAM DAILY;
     Route: 030
  3. NIFEDIPINE. [Suspect]
     Active Substance: NIFEDIPINE
     Indication: TOCOLYSIS
     Dosage: 120 MILLIGRAM DAILY; 20 MG EVERY 4 HOURS
     Route: 048

REACTIONS (10)
  - Live birth [Unknown]
  - Caesarean section [Recovered/Resolved]
  - Dyspnoea [Recovered/Resolved]
  - Maternal exposure during pregnancy [Unknown]
  - Cardiac arrest [Recovered/Resolved]
  - Pulmonary oedema [Recovered/Resolved]
  - Respiratory arrest [Recovered/Resolved]
  - Hypoxia [Recovered/Resolved]
  - Chest pain [Recovered/Resolved]
  - Back pain [Recovered/Resolved]
